FAERS Safety Report 24603899 (Version 1)
Quarter: 2024Q4

REPORT INFORMATION
  Report Type: Spontaneous
  Country: CN (occurrence: CN)
  Receive Date: 20241111
  Receipt Date: 20241111
  Transmission Date: 20250114
  Serious: Yes (Other)
  Sender: BAXTER
  Company Number: None

PATIENT
  Age: 61 Year
  Sex: Female
  Weight: 75 kg

DRUGS (2)
  1. CYCLOPHOSPHAMIDE [Suspect]
     Active Substance: CYCLOPHOSPHAMIDE
     Indication: Chemotherapy
     Dosage: 0.9G, ONCE A DAY, DILUTED WITH 30 ML OF  0.9% SODIUM CHLORIDE
     Route: 041
     Dates: start: 20241017, end: 20241017
  2. SODIUM CHLORIDE [Suspect]
     Active Substance: SODIUM CHLORIDE
     Dosage: 30 ML OF  0.9%, ONCE A DAY, USED TO DILUTE CYCLOPHOSPHAMIDE 0.9G, DOSAGE FORM: INJECTION
     Route: 041
     Dates: start: 20241017, end: 20241017

REACTIONS (2)
  - Hepatic function abnormal [Unknown]
  - Myelosuppression [Unknown]

NARRATIVE: CASE EVENT DATE: 20241030
